FAERS Safety Report 7606582-0 (Version None)
Quarter: 2011Q3

REPORT INFORMATION
  Report Type: 
  Country: None (occurrence: None)
  Receive Date: 20110713
  Receipt Date: 20110705
  Transmission Date: 20111222
  Serious: Yes (Other)
  Sender: FDA-Public Use
  Company Number: US-ASTRAZENECA-2011SE28740

PATIENT
  Age: 52 Year
  Sex: Male

DRUGS (3)
  1. NEXIUM [Suspect]
     Route: 048
  2. METOPROLOL SUCCINATE [Concomitant]
  3. ATACAND [Concomitant]

REACTIONS (1)
  - CEREBROVASCULAR ACCIDENT [None]
